FAERS Safety Report 9797576 (Version 1)
Quarter: 2014Q1

REPORT INFORMATION
  Report Type: Report from Study
  Country: JP (occurrence: JP)
  Receive Date: 20140106
  Receipt Date: 20140106
  Transmission Date: 20141002
  Serious: Yes (Other)
  Sender: FDA-Public Use
  Company Number: JP-ROCHE-1327425

PATIENT
  Sex: 0

DRUGS (8)
  1. BEVACIZUMAB [Suspect]
     Indication: COLORECTAL CANCER METASTATIC
     Route: 065
  2. CAPECITABINE [Suspect]
     Indication: COLORECTAL CANCER METASTATIC
     Route: 048
  3. LEUCOVORIN [Suspect]
     Indication: COLORECTAL CANCER METASTATIC
     Route: 065
  4. OXALIPLATIN [Suspect]
     Indication: COLORECTAL CANCER METASTATIC
     Route: 065
  5. OXALIPLATIN [Suspect]
     Route: 065
  6. FLUOROURACIL [Suspect]
     Indication: COLORECTAL CANCER METASTATIC
     Route: 040
  7. FLUOROURACIL [Suspect]
     Route: 065
  8. IRINOTECAN [Suspect]
     Indication: COLORECTAL CANCER METASTATIC
     Route: 065

REACTIONS (9)
  - Neutropenia [Unknown]
  - Thrombocytopenia [Unknown]
  - Anaemia [Unknown]
  - Nausea [Unknown]
  - Vomiting [Unknown]
  - Diarrhoea [Unknown]
  - Stomatitis [Unknown]
  - Mucosal inflammation [Unknown]
  - Neuropathy peripheral [Unknown]
